FAERS Safety Report 11750039 (Version 1)
Quarter: 2015Q4

REPORT INFORMATION
  Report Type: Spontaneous
  Country: US (occurrence: None)
  Receive Date: 20151117
  Receipt Date: 20151117
  Transmission Date: 20160304
  Serious: No
  Sender: FDA-Public Use
  Company Number: None

PATIENT
  Age: 58 Year
  Sex: Male

DRUGS (3)
  1. METFORMIN [Suspect]
     Active Substance: METFORMIN HYDROCHLORIDE
  2. TOUJEO [Concomitant]
     Active Substance: INSULIN GLARGINE
  3. GLYBURIDE. [Suspect]
     Active Substance: GLYBURIDE

REACTIONS (2)
  - Drug dose omission [None]
  - Memory impairment [None]

NARRATIVE: CASE EVENT DATE: 20151116
